FAERS Safety Report 5149719-8 (Version None)
Quarter: 2006Q4

REPORT INFORMATION
  Report Type: 
  Country: None (occurrence: None)
  Receive Date: 20061113
  Receipt Date: 20061106
  Transmission Date: 20070319
  Serious: Yes (Death, Hospitalization)
  Sender: FDA-Public Use
  Company Number: FR-NOVOPROD-258389

PATIENT
  Age: 74 Year
  Sex: Female

DRUGS (13)
  1. NOVONORM [Suspect]
     Indication: DIABETES MELLITUS INSULIN-DEPENDENT
     Dosage: 2 MG, UNK
     Route: 048
     Dates: start: 20060215, end: 20060928
  2. LEVEMIR [Suspect]
     Indication: DIABETES MELLITUS INSULIN-DEPENDENT
     Dosage: UNK, UNK
  3. VASTEN [Suspect]
     Dosage: 40 MG, UNK
     Dates: start: 20050118, end: 20060926
  4. TAHOR [Suspect]
     Dosage: 1 DF, UNK
     Route: 048
     Dates: end: 20050110
  5. FUROSEMIDE [Suspect]
     Dosage: 20 MG, UNK
     Route: 048
     Dates: start: 20060115, end: 20060929
  6. STAGID [Suspect]
     Dosage: 3 TAB, UNK
     Route: 048
     Dates: end: 20060928
  7. DEROXAT [Suspect]
     Dates: end: 20060928
  8. ATARAX                             /00058401/ [Concomitant]
  9. LEVOTHYROXINE SODIUM [Concomitant]
  10. DRIPTANE [Concomitant]
  11. ECAZIDE [Concomitant]
  12. NPH INSULIN [Concomitant]
  13. MODOPAR [Concomitant]
     Dates: start: 20060908, end: 20060928

REACTIONS (1)
  - MYOPATHY [None]
